FAERS Safety Report 8951073 (Version 3)
Quarter: 2013Q2

REPORT INFORMATION
  Report Type: Spontaneous
  Country: US (occurrence: None)
  Receive Date: 20121129
  Receipt Date: 20130506
  Transmission Date: 20140414
  Serious: Yes (Other)
  Sender: FDA-Public Use
  Company Number: ADR-2012-02143

PATIENT
  Age: 67 Year
  Sex: Female

DRUGS (2)
  1. LIORESAL INTRATHECAL (BACLOFEN INJECTION)2000 MCG/ML [Suspect]
     Indication: MUSCLE SPASTICITY
  2. ORAL BACLOFEN [Concomitant]

REACTIONS (3)
  - Device power source issue [None]
  - Mobility decreased [None]
  - Muscle spasms [None]
